FAERS Safety Report 9628849 (Version 2)
Quarter: 2013Q4

REPORT INFORMATION
  Report Type: Spontaneous
  Country: AR (occurrence: AR)
  Receive Date: 20131017
  Receipt Date: 20131101
  Transmission Date: 20140711
  Serious: Yes (Other)
  Sender: FDA-Public Use
  Company Number: AR-AMGEN-ARGSP2013073165

PATIENT
  Age: 55 Year
  Sex: Female

DRUGS (3)
  1. ENBREL [Suspect]
     Indication: RHEUMATOID ARTHRITIS
     Dosage: 50 MG, WEEKLY
     Route: 065
     Dates: start: 20080717, end: 2008
  2. HYDROXYCHLOROQUINE SULFATE [Suspect]
     Indication: RHEUMATOID ARTHRITIS
     Dosage: UNK
     Route: 065
     Dates: start: 2005
  3. CORTICOSTEROID NOS [Concomitant]
     Dosage: UNK
     Dates: start: 2009

REACTIONS (3)
  - Angina unstable [Recovered/Resolved]
  - Cervical radiculopathy [Not Recovered/Not Resolved]
  - Visual acuity reduced [Recovered/Resolved]
